FAERS Safety Report 14369344 (Version 1)
Quarter: 2018Q1

REPORT INFORMATION
  Report Type: Spontaneous
  Country: CL (occurrence: CL)
  Receive Date: 20180109
  Receipt Date: 20180109
  Transmission Date: 20180509
  Serious: Yes (Hospitalization)
  Sender: FDA-Public Use
  Company Number: CL-BAXTER-2018BAX000305

PATIENT
  Age: 57 Year
  Sex: Female
  Weight: 50 kg

DRUGS (8)
  1. REMIFENTANIL [Suspect]
     Active Substance: REMIFENTANIL
     Indication: GENERAL ANAESTHESIA
     Route: 040
     Dates: start: 20171228, end: 20171228
  2. DANTROLENE. [Suspect]
     Active Substance: DANTROLENE SODIUM
     Indication: HYPERTHERMIA MALIGNANT
     Dosage: 2 DOSES
     Route: 040
     Dates: start: 20171228, end: 20171228
  3. SUPRANE [Suspect]
     Active Substance: DESFLURANE
     Indication: ANAESTHESIA PROCEDURE
     Route: 055
     Dates: start: 20171228, end: 20171228
  4. DIPYRONE [Concomitant]
     Active Substance: DIPYRONE
     Indication: PRODUCT USED FOR UNKNOWN INDICATION
     Route: 065
  5. PROPOFOL. [Suspect]
     Active Substance: PROPOFOL
     Indication: GENERAL ANAESTHESIA
     Route: 042
     Dates: start: 20171228, end: 20171228
  6. DANTROLENE. [Suspect]
     Active Substance: DANTROLENE SODIUM
     Route: 041
     Dates: start: 20171228, end: 20171229
  7. DEXAMETHASONE. [Suspect]
     Active Substance: DEXAMETHASONE
     Indication: PRODUCT USED FOR UNKNOWN INDICATION
     Route: 065
  8. OMEPRAZOLE. [Concomitant]
     Active Substance: OMEPRAZOLE
     Indication: PRODUCT USED FOR UNKNOWN INDICATION
     Route: 065

REACTIONS (4)
  - Inflammation [Recovered/Resolved]
  - Hyperthermia malignant [Recovered/Resolved]
  - Gallbladder disorder [Recovered/Resolved]
  - Pyrexia [Recovered/Resolved]

NARRATIVE: CASE EVENT DATE: 20171228
